FAERS Safety Report 23635698 (Version 1)
Quarter: 2024Q1

REPORT INFORMATION
  Report Type: Spontaneous
  Country: US (occurrence: US)
  Receive Date: 20240315
  Receipt Date: 20240315
  Transmission Date: 20240410
  Serious: Yes (Hospitalization, Disabling, Other)
  Sender: FDA-Public Use
  Company Number: US-Accord-412533

PATIENT
  Age: 71 Year
  Sex: Male

DRUGS (1)
  1. CARBOPLATIN [Suspect]
     Active Substance: CARBOPLATIN
     Indication: Neuroendocrine carcinoma of the bladder
     Dosage: 3 CYCLES?1 ML/DAY OF CARBOPLATIN (10 MG/ML) FOR THREE CONSECUTIVE DAYS

REACTIONS (3)
  - Optic neuropathy [Not Recovered/Not Resolved]
  - Blindness [Not Recovered/Not Resolved]
  - Off label use [Unknown]
